FAERS Safety Report 23517517 (Version 1)
Quarter: 2024Q1

REPORT INFORMATION
  Report Type: Spontaneous
  Country: US (occurrence: US)
  Receive Date: 20240213
  Receipt Date: 20240213
  Transmission Date: 20240410
  Serious: No
  Sender: FDA-Public Use
  Company Number: US-PFIZER INC-202300401004

PATIENT
  Age: 66 Year
  Sex: Female
  Weight: 47.619 kg

DRUGS (1)
  1. ESTRING [Suspect]
     Active Substance: ESTRADIOL
     Indication: Menopausal symptoms
     Dosage: 7.5 UG, DAILY
     Route: 067
     Dates: start: 20231120

REACTIONS (5)
  - Emotional distress [Recovered/Resolved with Sequelae]
  - Vulvovaginal discomfort [Recovered/Resolved with Sequelae]
  - Vulvovaginal pain [Recovered/Resolved with Sequelae]
  - Product size issue [Recovered/Resolved with Sequelae]
  - Device difficult to use [Recovered/Resolved with Sequelae]

NARRATIVE: CASE EVENT DATE: 20231120
